FAERS Safety Report 5804233-9 (Version None)
Quarter: 2008Q3

REPORT INFORMATION
  Report Type: 
  Country: None (occurrence: None)
  Receive Date: 20080707
  Receipt Date: 20080623
  Transmission Date: 20090109
  Serious: Yes (Death)
  Sender: FDA-Public Use
  Company Number: 2008AL007464

PATIENT
  Age: 67 Year
  Sex: Male

DRUGS (3)
  1. SERTRALINE HYDROCHLORIDE [Suspect]
     Indication: OBSESSIVE-COMPULSIVE DISORDER
     Dosage: 50 MG; QD; PO
     Route: 048
     Dates: start: 20080326
  2. DIAZEPAM [Concomitant]
  3. TEMAZEPAM [Concomitant]

REACTIONS (3)
  - COMPLETED SUICIDE [None]
  - DEPRESSED MOOD [None]
  - OBSESSIVE-COMPULSIVE DISORDER [None]
